FAERS Safety Report 7464202-2 (Version None)
Quarter: 2011Q2

REPORT INFORMATION
  Report Type: 
  Country: None (occurrence: None)
  Receive Date: 20110506
  Receipt Date: 20110427
  Transmission Date: 20111010
  Serious: Yes (Hospitalization)
  Sender: FDA-Public Use
  Company Number: DE-GENENTECH-315833

PATIENT
  Sex: Female
  Weight: 97.5 kg

DRUGS (15)
  1. RITUXAN [Suspect]
     Indication: NON-HODGKIN'S LYMPHOMA
     Dosage: 750 MG, UNK
     Route: 042
     Dates: start: 20110119
  2. HYDROCHLOROTHIAZIDE [Concomitant]
     Indication: PRODUCT USED FOR UNKNOWN INDICATION
  3. ENALAPRIL [Concomitant]
     Indication: PRODUCT USED FOR UNKNOWN INDICATION
  4. TREANDA [Suspect]
     Dosage: 243 MG, UNK
     Route: 042
     Dates: start: 20110405
  5. DECORTIN [Concomitant]
     Indication: PRODUCT USED FOR UNKNOWN INDICATION
  6. ENOXAPARIN SODIUM [Concomitant]
     Indication: PRODUCT USED FOR UNKNOWN INDICATION
     Route: 058
  7. XIPAMID [Concomitant]
     Indication: PRODUCT USED FOR UNKNOWN INDICATION
  8. PANTOZOL (NETHERLANDS) [Concomitant]
     Indication: PRODUCT USED FOR UNKNOWN INDICATION
  9. RITUXAN [Suspect]
     Dosage: 735 MG, UNK
     Route: 042
     Dates: start: 20110404
  10. METOPROLOL SUCCINATE [Concomitant]
     Indication: PRODUCT USED FOR UNKNOWN INDICATION
  11. TREANDA [Suspect]
     Indication: NON-HODGKIN'S LYMPHOMA
     Dosage: 180 MG, UNK
     Route: 042
     Dates: start: 20110120
  12. TILIDIN PLUS [Concomitant]
     Indication: PRODUCT USED FOR UNKNOWN INDICATION
  13. ALLOPURINOL [Concomitant]
     Indication: PRODUCT USED FOR UNKNOWN INDICATION
  14. NOVAMIN [Concomitant]
     Indication: PRODUCT USED FOR UNKNOWN INDICATION
  15. COTRIM [Concomitant]
     Indication: PRODUCT USED FOR UNKNOWN INDICATION

REACTIONS (3)
  - GENERAL PHYSICAL HEALTH DETERIORATION [None]
  - DIARRHOEA [None]
  - THROMBOSIS [None]
